FAERS Safety Report 9181264 (Version 1)
Quarter: 2013Q1

REPORT INFORMATION
  Report Type: Spontaneous
  Country: US (occurrence: None)
  Receive Date: 20130320
  Receipt Date: 20130320
  Transmission Date: 20140127
  Serious: Yes (Death)
  Sender: FDA-Public Use
  Company Number: SYM-2013-01694

PATIENT
  Age: 56 Year
  Sex: Male

DRUGS (3)
  1. FLUOROURACIL [Suspect]
     Indication: GASTRIC CANCER
  2. OXALIPLATIN [Suspect]
     Indication: GASTRIC CANCER
  3. DOCETAXEL [Suspect]
     Indication: GASTRIC CANCER

REACTIONS (1)
  - Neuropathy peripheral [None]
